FAERS Safety Report 10182387 (Version 1)
Quarter: 2014Q2

REPORT INFORMATION
  Report Type: Spontaneous
  Country: US (occurrence: None)
  Receive Date: 20140516
  Receipt Date: 20140516
  Transmission Date: 20141212
  Serious: Yes (Hospitalization, Other)
  Sender: FDA-Public Use
  Company Number: US-ZYDUS-003333

PATIENT
  Age: 59 Year
  Sex: Male

DRUGS (4)
  1. AMLODIPINE [Suspect]
  2. LISINOPRIL?10 MG [Suspect]
  3. SIMVASTATIN (SIMVASTATIN) [Suspect]
  4. METFORMIN 500 MG [Suspect]

REACTIONS (5)
  - Cardiogenic shock [None]
  - Intentional overdose [None]
  - Suicide attempt [None]
  - Lactic acidosis [None]
  - Renal failure acute [None]
